FAERS Safety Report 6705430-0 (Version None)
Quarter: 2010Q2

REPORT INFORMATION
  Report Type: 
  Country: None (occurrence: None)
  Receive Date: 20100503
  Receipt Date: 20100429
  Transmission Date: 20101027
  Serious: No
  Sender: FDA-Public Use
  Company Number: US-BIOGENIDEC-2010BI010990

PATIENT
  Age: 50 Year
  Sex: Female

DRUGS (1)
  1. TYSABRI [Suspect]
     Indication: MULTIPLE SCLEROSIS
     Route: 042
     Dates: start: 20080825, end: 20100401

REACTIONS (7)
  - ATAXIA [None]
  - DIZZINESS [None]
  - GAIT DISTURBANCE [None]
  - HYPOAESTHESIA [None]
  - MEMORY IMPAIRMENT [None]
  - PARAESTHESIA [None]
  - SPEECH DISORDER [None]
